FAERS Safety Report 7976950-6 (Version None)
Quarter: 2011Q4

REPORT INFORMATION
  Report Type: 
  Country: None (occurrence: None)
  Receive Date: 20111213
  Receipt Date: 20111111
  Transmission Date: 20120403
  Serious: No
  Sender: FDA-Public Use
  Company Number: US-AMGEN-USASP2011059573

PATIENT
  Sex: Male

DRUGS (2)
  1. ENBREL [Suspect]
     Indication: RHEUMATOID ARTHRITIS
     Dosage: 50 MG, QWK
     Dates: start: 20100720
  2. METHOTREXATE [Concomitant]

REACTIONS (4)
  - PRODUCTIVE COUGH [None]
  - FEELING ABNORMAL [None]
  - PARANASAL SINUS HYPERSECRETION [None]
  - SINUSITIS [None]
